FAERS Safety Report 21921155 (Version 28)
Quarter: 2025Q4

REPORT INFORMATION
  Report Type: Spontaneous
  Country: CA (occurrence: CA)
  Receive Date: 20230127
  Receipt Date: 20251217
  Transmission Date: 20260117
  Serious: Yes (Death, Life-Threatening, Hospitalization, Other)
  Sender: ALEXION PHARMACEUTICALS
  Company Number: 2021A294924

PATIENT
  Age: 65 Year
  Sex: Male
  Weight: 79 kg

DRUGS (107)
  1. BUDESONIDE [Suspect]
     Active Substance: BUDESONIDE
     Indication: Product used for unknown indication
     Dosage: UNK UNK, QD
  2. BUDESONIDE [Suspect]
     Active Substance: BUDESONIDE
     Dosage: UNKNOWN, FREQUENCY: UNK
     Route: 065
  3. BUDESONIDE [Suspect]
     Active Substance: BUDESONIDE
     Dosage: UNKNOWN, FREQUENCY: UNK
     Route: 061
  4. BUDESONIDE\FORMOTEROL [Suspect]
     Active Substance: BUDESONIDE\FORMOTEROL
     Route: 065
  5. CANDESARTAN CILEXETIL [Suspect]
     Active Substance: CANDESARTAN CILEXETIL
     Dosage: 1 EVERY 1 DAYS
     Route: 065
  6. CANDESARTAN CILEXETIL [Suspect]
     Active Substance: CANDESARTAN CILEXETIL
     Dosage: 500.0 MILLIGRAM
     Route: 065
  7. CANDESARTAN CILEXETIL [Suspect]
     Active Substance: CANDESARTAN CILEXETIL
     Dosage: 1.0 DOSAGE FORMS 1 EVERY 1 DAYS
     Route: 065
  8. CANDESARTAN CILEXETIL [Suspect]
     Active Substance: CANDESARTAN CILEXETIL
     Dosage: 32.0 MILLIGRAM 1 EVERY 1 DAYS
     Route: 065
  9. CANDESARTAN CILEXETIL [Suspect]
     Active Substance: CANDESARTAN CILEXETIL
     Dosage: UNK
     Route: 065
  10. CANDESARTAN CILEXETIL [Suspect]
     Active Substance: CANDESARTAN CILEXETIL
  11. CANDESARTAN CILEXETIL [Suspect]
     Active Substance: CANDESARTAN CILEXETIL
  12. CANDESARTAN CILEXETIL [Suspect]
     Active Substance: CANDESARTAN CILEXETIL
  13. CANDESARTAN CILEXETIL [Suspect]
     Active Substance: CANDESARTAN CILEXETIL
  14. CANDESARTAN CILEXETIL [Suspect]
     Active Substance: CANDESARTAN CILEXETIL
  15. CANDESARTAN CILEXETIL [Suspect]
     Active Substance: CANDESARTAN CILEXETIL
  16. ROSUVASTATIN [Concomitant]
     Active Substance: ROSUVASTATIN
     Dosage: UNK
     Route: 065
  17. PENICILLIN V [Concomitant]
     Active Substance: PENICILLIN V
     Route: 065
  18. ADVAIR HFA [Suspect]
     Active Substance: FLUTICASONE PROPIONATE\SALMETEROL XINAFOATE
  19. ALENDRONATE SODIUM [Suspect]
     Active Substance: ALENDRONATE SODIUM
  20. AZATHIOPRINE [Suspect]
     Active Substance: AZATHIOPRINE
  21. BETAMETHASONE [Suspect]
     Active Substance: BETAMETHASONE
  22. BREO ELLIPTA [Suspect]
     Active Substance: FLUTICASONE FUROATE\VILANTEROL TRIFENATATE
  23. CALCIUM CARBONATE [Suspect]
     Active Substance: CALCIUM CARBONATE
  24. CEFUROXIME [Suspect]
     Active Substance: CEFUROXIME
  25. CEPHALEXIN [Suspect]
     Active Substance: CEPHALEXIN
  26. CHOLECALCIFEROL [Suspect]
     Active Substance: CHOLECALCIFEROL
  27. CICLESONIDE [Suspect]
     Active Substance: CICLESONIDE
  28. AMOXICILLIN\CLAVULANATE POTASSIUM [Suspect]
     Active Substance: AMOXICILLIN\CLAVULANATE POTASSIUM
  29. CLOTRIMAZOLE [Suspect]
     Active Substance: CLOTRIMAZOLE
  30. CUPRIC SULFATE ANHYDROUS [Suspect]
     Active Substance: CUPRIC SULFATE ANHYDROUS
  31. .ALPHA.-TOCOPHEROL ACETATE, D- [Suspect]
     Active Substance: .ALPHA.-TOCOPHEROL ACETATE, D-
  32. DILTIAZEM [Suspect]
     Active Substance: DILTIAZEM
  33. DOMPERIDONE MALEATE [Suspect]
     Active Substance: DOMPERIDONE MALEATE
  34. DOXAZOSIN [Suspect]
     Active Substance: DOXAZOSIN MESYLATE
  35. DUTASTERIDE [Suspect]
     Active Substance: DUTASTERIDE
  36. ELIQUIS [Suspect]
     Active Substance: APIXABAN
  37. LEVOTHYROXINE [Concomitant]
     Active Substance: LEVOTHYROXINE
  38. ERGOCALCIFEROL [Suspect]
     Active Substance: ERGOCALCIFEROL
  39. FORMOTEROL [Suspect]
     Active Substance: FORMOTEROL
  40. FUROSEMIDE [Suspect]
     Active Substance: FUROSEMIDE
  41. GLUCAGON [Suspect]
     Active Substance: GLUCAGON
  42. HYDROCHLOROTHIAZIDE [Suspect]
     Active Substance: HYDROCHLOROTHIAZIDE
  43. IMURAN [Suspect]
     Active Substance: AZATHIOPRINE
  44. INSULIN ASPART [Suspect]
     Active Substance: INSULIN ASPART
  45. INSULIN GLARGINE [Suspect]
     Active Substance: INSULIN GLARGINE
  46. FERROUS SULFATE ANHYDROUS [Suspect]
     Active Substance: FERROUS SULFATE ANHYDROUS
  47. LASIX [Suspect]
     Active Substance: FUROSEMIDE
  48. LEVOFLOXACIN [Suspect]
     Active Substance: LEVOFLOXACIN
  49. LEVOTHYROXINE SODIUM [Suspect]
     Active Substance: LEVOTHYROXINE SODIUM
  50. LIRAGLUTIDE [Suspect]
     Active Substance: LIRAGLUTIDE
  51. MAGNESIUM OXIDE [Suspect]
     Active Substance: MAGNESIUM OXIDE
  52. METFORMIN [Suspect]
     Active Substance: METFORMIN HYDROCHLORIDE
     Indication: Product used for unknown indication
     Dosage: 4 DOSAGE FORM, QD
     Route: 065
  53. METFORMIN [Suspect]
     Active Substance: METFORMIN HYDROCHLORIDE
     Dosage: 1 EVERY 24 HOURS
     Route: 065
  54. METFORMIN [Suspect]
     Active Substance: METFORMIN HYDROCHLORIDE
     Dosage: 4 EVERY 1 DAYS
     Route: 065
  55. METFORMIN [Suspect]
     Active Substance: METFORMIN HYDROCHLORIDE
     Dosage: 1 EVERY 1 DAYS
     Route: 065
  56. METFORMIN [Suspect]
     Active Substance: METFORMIN HYDROCHLORIDE
     Dosage: 1 DOSAGE FORM, QD
     Route: 065
  57. METFORMIN [Suspect]
     Active Substance: METFORMIN HYDROCHLORIDE
     Dosage: 2 DOSAGE FORM, QD
     Route: 065
  58. METFORMIN [Suspect]
     Active Substance: METFORMIN HYDROCHLORIDE
     Dosage: 1 EVERY 24 HOURS
     Route: 065
  59. METFORMIN [Suspect]
     Active Substance: METFORMIN HYDROCHLORIDE
     Dosage: 4 DOSAGE FORM, QD
     Route: 065
  60. METFORMIN [Suspect]
     Active Substance: METFORMIN HYDROCHLORIDE
     Dosage: 6 HOURS
     Route: 065
  61. METFORMIN [Suspect]
     Active Substance: METFORMIN HYDROCHLORIDE
     Dosage: 2 DOSAGE FORM, Q12H
     Route: 065
  62. METFORMIN [Suspect]
     Active Substance: METFORMIN HYDROCHLORIDE
     Dosage: UNK UNK, Q12H
     Route: 065
  63. METFORMIN [Suspect]
     Active Substance: METFORMIN HYDROCHLORIDE
     Dosage: 1 EVERY 24 HOURS
     Route: 065
  64. MONTELUKAST SODIUM [Suspect]
     Active Substance: MONTELUKAST SODIUM
  65. MORNIFLUMATE [Suspect]
     Active Substance: MORNIFLUMATE
  66. MOXIFLOXACIN [Suspect]
     Active Substance: MOXIFLOXACIN
  67. NICOTINAMIDE [Suspect]
     Active Substance: NIACINAMIDE
  68. NOVORAPID [Suspect]
     Active Substance: INSULIN ASPART
  69. NUCALA [Suspect]
     Active Substance: MEPOLIZUMAB
  70. PANTOPRAZOLE [Suspect]
     Active Substance: PANTOPRAZOLE
  71. PIOGLITAZONE HYDROCHLORIDE [Suspect]
     Active Substance: PIOGLITAZONE HYDROCHLORIDE
  72. AZITHROMYCIN [Suspect]
     Active Substance: AZITHROMYCIN
  73. PREDNISONE [Suspect]
     Active Substance: PREDNISONE
  74. PREDNISONE [Suspect]
     Active Substance: PREDNISONE
  75. PREDNISONE [Suspect]
     Active Substance: PREDNISONE
  76. PREDNISONE [Suspect]
     Active Substance: PREDNISONE
  77. PREDNISONE [Suspect]
     Active Substance: PREDNISONE
  78. PREDNISONE [Suspect]
     Active Substance: PREDNISONE
  79. PREDNISONE [Suspect]
     Active Substance: PREDNISONE
  80. PREDNISONE [Suspect]
     Active Substance: PREDNISONE
  81. PREDNISONE [Suspect]
     Active Substance: PREDNISONE
  82. RUPATADINE [Suspect]
     Active Substance: RUPATADINE
  83. ALBUTEROL [Suspect]
     Active Substance: ALBUTEROL
     Indication: Eosinophilic granulomatosis with polyangiitis
     Dosage: UNK, QD
     Route: 065
  84. ALBUTEROL [Suspect]
     Active Substance: ALBUTEROL
     Indication: Asthma
     Dosage: 1 MILLIGRAM, QD
     Route: 065
  85. ALBUTEROL [Suspect]
     Active Substance: ALBUTEROL
     Dosage: UNK, QD
     Route: 065
  86. ALBUTEROL [Suspect]
     Active Substance: ALBUTEROL
     Indication: Product used for unknown indication
     Dosage: UNK
     Route: 065
  87. SENNOSIDES [Suspect]
     Active Substance: SENNOSIDES
  88. SEPTRA [Suspect]
     Active Substance: SULFAMETHOXAZOLE\TRIMETHOPRIM
  89. SERTRALINE [Suspect]
     Active Substance: SERTRALINE HYDROCHLORIDE
  90. SPIRIVA [Suspect]
     Active Substance: TIOTROPIUM BROMIDE MONOHYDRATE
  91. BACTRIM [Suspect]
     Active Substance: SULFAMETHOXAZOLE\TRIMETHOPRIM
  92. TAMSULOSIN [Suspect]
     Active Substance: TAMSULOSIN
  93. PANTOPRAZOLE MAGNESIUM [Suspect]
     Active Substance: PANTOPRAZOLE MAGNESIUM
  94. TRELEGY ELLIPTA [Suspect]
     Active Substance: FLUTICASONE FUROATE\UMECLIDINIUM BROMIDE\VILANTEROL TRIFENATATE
  95. TUMS [Suspect]
     Active Substance: CALCIUM CARBONATE
  96. UMECLIDINIUM BROMIDE [Suspect]
     Active Substance: UMECLIDINIUM BROMIDE
  97. VITAMIN D [Suspect]
     Active Substance: VITAMIN D NOS
  98. ZENHALE [Concomitant]
     Active Substance: FORMOTEROL FUMARATE\MOMETASONE FUROATE
     Indication: Product used for unknown indication
     Dosage: 750 MILLIGRAM, QD
     Route: 065
  99. SULFADIAZINE [Suspect]
     Active Substance: SULFADIAZINE
     Indication: Product used for unknown indication
     Dosage: 1 EVERY 1 WEEKS
     Route: 065
  100. SULFADIAZINE [Suspect]
     Active Substance: SULFADIAZINE
     Dosage: 3.0 DOSAGE FORMS 1 EVERY 1 WEEKS
     Route: 065
  101. SULFADIAZINE [Suspect]
     Active Substance: SULFADIAZINE
     Dosage: UNK
     Route: 065
  102. SULFADIAZINE [Suspect]
     Active Substance: SULFADIAZINE
     Dosage: UNK
     Route: 065
  103. SULFADIAZINE [Suspect]
     Active Substance: SULFADIAZINE
     Dosage: UNK
     Route: 065
  104. SULFAMETHOXAZOLE [Suspect]
     Active Substance: SULFAMETHOXAZOLE
     Indication: Product used for unknown indication
     Dosage: 3.0 DOSAGE FORMS
     Route: 065
  105. SULFAMETHOXAZOLE [Suspect]
     Active Substance: SULFAMETHOXAZOLE
     Dosage: 3.0 DOSAGE FORMS
     Route: 065
  106. SULFAMETHOXAZOLE [Suspect]
     Active Substance: SULFAMETHOXAZOLE
     Dosage: 1 EVERY 3 WEEKS
     Route: 065
  107. MAGNESIUM ASCORBATE [Suspect]
     Active Substance: MAGNESIUM ASCORBATE
     Indication: Product used for unknown indication
     Route: 065

REACTIONS (42)
  - Antineutrophil cytoplasmic antibody positive [Fatal]
  - Anxiety [Fatal]
  - Arteriosclerosis [Fatal]
  - Asthma [Fatal]
  - Capillaritis [Fatal]
  - Condition aggravated [Fatal]
  - Conjunctivitis allergic [Fatal]
  - Death [Fatal]
  - Dust allergy [Fatal]
  - Eosinophilic granulomatosis with polyangiitis [Fatal]
  - Full blood count abnormal [Fatal]
  - Haemoptysis [Fatal]
  - Hypothyroidism [Fatal]
  - Lung disorder [Fatal]
  - Neuritis [Fatal]
  - Nodule [Fatal]
  - Normochromic normocytic anaemia [Fatal]
  - Obstructive airways disorder [Fatal]
  - Pain in extremity [Fatal]
  - Pulmonary alveolar haemorrhage [Fatal]
  - Pulmonary embolism [Fatal]
  - Pulmonary fibrosis [Fatal]
  - Pulmonary vasculitis [Fatal]
  - Sleep disorder due to a general medical condition [Fatal]
  - Skin exfoliation [Fatal]
  - Thrombosis [Fatal]
  - Vasculitis [Fatal]
  - Arteriosclerosis coronary artery [Unknown]
  - Dyspnoea [Unknown]
  - Forced expiratory volume decreased [Unknown]
  - Hypoxia [Unknown]
  - Loss of personal independence in daily activities [Unknown]
  - Mite allergy [Unknown]
  - Mycotic allergy [Unknown]
  - Neurological symptom [Unknown]
  - Productive cough [Unknown]
  - Respiratory symptom [Unknown]
  - Respiratory symptom [Unknown]
  - Spirometry abnormal [Unknown]
  - Therapeutic product effect incomplete [Unknown]
  - Lung abscess [Unknown]
  - Wheezing [Unknown]
